FAERS Safety Report 9692102 (Version 1)
Quarter: 2013Q4

REPORT INFORMATION
  Report Type: Spontaneous
  Country: US (occurrence: US)
  Receive Date: 20131118
  Receipt Date: 20131118
  Transmission Date: 20140711
  Serious: Yes (Hospitalization)
  Sender: FDA-Public Use
  Company Number: US-BIOGENIDEC-2013BI108883

PATIENT
  Age: 69 Year
  Sex: Female

DRUGS (3)
  1. AVONEX [Suspect]
     Indication: MULTIPLE SCLEROSIS
     Route: 030
     Dates: start: 2004
  2. DOXYCYCLINE [Concomitant]
  3. NUPROCIN [Concomitant]

REACTIONS (2)
  - Retinal tear [Not Recovered/Not Resolved]
  - Retinal detachment [Not Recovered/Not Resolved]
